FAERS Safety Report 9338686 (Version 1)
Quarter: 2013Q2

REPORT INFORMATION
  Report Type: Spontaneous
  Country: US (occurrence: US)
  Receive Date: 20130610
  Receipt Date: 20130610
  Transmission Date: 20140414
  Serious: No
  Sender: FDA-Public Use
  Company Number: US-BAYER-2013-068937

PATIENT
  Age: 20 Year
  Sex: Female
  Weight: 72.56 kg

DRUGS (6)
  1. BETASERON [Suspect]
     Dosage: 0.25 MG, QOD
     Route: 058
  2. TRI-SPRINTEC [Concomitant]
  3. VITAMIN D3 [Concomitant]
     Dosage: 10000 U, UNK
  4. FLUOXETINE [Concomitant]
     Dosage: 10 MG, UNK
  5. MOTRIN [Concomitant]
     Dosage: 400 MG, UNK
  6. PRED FORTE [Concomitant]
     Route: 048

REACTIONS (1)
  - Headache [Recovered/Resolved]
